FAERS Safety Report 25824995 (Version 1)
Quarter: 2025Q3

REPORT INFORMATION
  Report Type: Spontaneous
  Country: US (occurrence: US)
  Receive Date: 20250919
  Receipt Date: 20250919
  Transmission Date: 20251020
  Serious: No
  Sender: BOEHRINGER INGELHEIM
  Company Number: US-BoehringerIngelheim-2025-BI-096510

PATIENT
  Age: 66 Year
  Sex: Male

DRUGS (3)
  1. JARDIANCE [Suspect]
     Active Substance: EMPAGLIFLOZIN
     Indication: Product used for unknown indication
  2. BASAGLAR [Suspect]
     Active Substance: INSULIN GLARGINE
     Indication: Diabetes mellitus
  3. INSULIN GLARGINE [Suspect]
     Active Substance: INSULIN GLARGINE
     Indication: Product used for unknown indication

REACTIONS (16)
  - Anxiety [Unknown]
  - Vision blurred [Unknown]
  - Confusional state [Unknown]
  - Dizziness [Unknown]
  - Heart rate increased [Unknown]
  - Headache [Unknown]
  - Hunger [Unknown]
  - Irritability [Unknown]
  - Hypoglycaemia [Unknown]
  - Mood altered [Unknown]
  - Incorrect dose administered [Unknown]
  - Tremor [Unknown]
  - Illness [Unknown]
  - Dysarthria [Unknown]
  - Hyperhidrosis [Unknown]
  - Abdominal discomfort [Unknown]
